FAERS Safety Report 15147864 (Version 1)
Quarter: 2018Q3

REPORT INFORMATION
  Report Type: Spontaneous
  Country: JP (occurrence: JP)
  Receive Date: 20180716
  Receipt Date: 20180716
  Transmission Date: 20181010
  Serious: Yes (Other)
  Sender: FDA-Public Use
  Company Number: JP-EISAI MEDICAL RESEARCH-EC-2018-039461

PATIENT
  Age: 17 Year
  Sex: Female

DRUGS (1)
  1. FYCOMPA [Suspect]
     Active Substance: PERAMPANEL
     Indication: EPILEPSY
     Route: 048
     Dates: start: 20180307

REACTIONS (1)
  - Sudden hearing loss [Recovered/Resolved]

NARRATIVE: CASE EVENT DATE: 20180424
